FAERS Safety Report 4386093-9 (Version None)
Quarter: 2004Q2

REPORT INFORMATION
  Report Type: 
  Country: None (occurrence: None)
  Receive Date: 20040616
  Receipt Date: 20040211
  Transmission Date: 20050107
  Serious: Yes (Hospitalization)
  Sender: FDA-Public Use
  Company Number: MK200402-0112-1

PATIENT
  Age: 35 Year
  Sex: Female

DRUGS (1)
  1. METHADOSE [Suspect]
     Dosage: 10 MG (3 TABLETS 30 MG BID)

REACTIONS (1)
  - RESPIRATORY ARREST [None]
